FAERS Safety Report 5749603-2 (Version None)
Quarter: 2008Q2

REPORT INFORMATION
  Report Type: 
  Country: None (occurrence: None)
  Receive Date: 20080527
  Receipt Date: 20080519
  Transmission Date: 20081010
  Serious: Yes (Hospitalization)
  Sender: FDA-Public Use
  Company Number: FR-ASTRAZENECA-2008CG00738

PATIENT
  Age: 29035 Day
  Sex: Female

DRUGS (8)
  1. TENORMIN [Suspect]
     Indication: HYPERTENSION
     Route: 048
     Dates: end: 20080410
  2. TENORMIN [Suspect]
     Route: 048
     Dates: start: 20080412, end: 20080414
  3. NITROGLYCERIN [Suspect]
     Indication: ANGINA PECTORIS
     Route: 062
     Dates: start: 20080124, end: 20080414
  4. ALDALIX [Suspect]
     Indication: HYPERTENSION
     Dosage: 50 + 20 MG DAILY
     Route: 048
     Dates: end: 20080414
  5. MOPRAL [Concomitant]
     Indication: CHEST PAIN
     Route: 048
     Dates: start: 20080101
  6. TAHOR [Concomitant]
     Indication: DYSLIPIDAEMIA
     Route: 048
     Dates: start: 20071204
  7. PREVISCAN [Concomitant]
     Dates: end: 20080426
  8. ZOLPIDEM TARTRATE [Concomitant]

REACTIONS (8)
  - ANGINA PECTORIS [None]
  - BRADYCARDIA [None]
  - CARDIO-RESPIRATORY ARREST [None]
  - DILATATION ATRIAL [None]
  - MALAISE [None]
  - MITRAL VALVE INCOMPETENCE [None]
  - ORTHOSTATIC HYPOTENSION [None]
  - VENTRICULAR HYPERTROPHY [None]
